FAERS Safety Report 4316071-7 (Version None)
Quarter: 2004Q1

REPORT INFORMATION
  Report Type: 
  Country: None (occurrence: None)
  Receive Date: 20040310
  Receipt Date: 20040301
  Transmission Date: 20041129
  Serious: Yes (Hospitalization)
  Sender: FDA-Public Use
  Company Number: HQWYE882511FEB04

PATIENT
  Age: 51 Year
  Sex: Male

DRUGS (2)
  1. SIROLIMUS (SIROLIMUS, SOLUTION) [Suspect]
     Indication: PROPHYLAXIS AGAINST TRANSPLANT REJECTION
     Route: 048
     Dates: start: 20030817
  2. PREDNISOLONE [Suspect]
     Indication: PROPHYLAXIS AGAINST TRANSPLANT REJECTION
     Dosage: 7.5 MG 1X PER 1 DAY
     Route: 048
     Dates: start: 20031204

REACTIONS (1)
  - HERNIAL EVENTRATION [None]
